FAERS Safety Report 4596866-5 (Version None)
Quarter: 2005Q1

REPORT INFORMATION
  Report Type: 
  Country: None (occurrence: None)
  Receive Date: 20050228
  Receipt Date: 20050214
  Transmission Date: 20050727
  Serious: Yes (Other)
  Sender: FDA-Public Use
  Company Number: 2005026544

PATIENT
  Age: 60 Year
  Sex: Female
  Weight: 81.6475 kg

DRUGS (5)
  1. BEXTRA [Suspect]
     Indication: SPINAL OSTEOARTHRITIS
     Dosage: 10 MG (10 MG, 1 IN 1 DR), ORAL
     Route: 048
     Dates: end: 20040101
  2. CETIRIZINE HCL [Concomitant]
  3. BUDESONIDE (BUDESONIDE) [Concomitant]
  4. PROGESTERONE [Concomitant]
  5. ESTRADIOL [Concomitant]

REACTIONS (5)
  - HYPERTENSION [None]
  - KIDNEY SMALL [None]
  - LABORATORY TEST ABNORMAL [None]
  - RENAL DISORDER [None]
  - RENAL IMPAIRMENT [None]
